FAERS Safety Report 5255388-9 (Version None)
Quarter: 2007Q1

REPORT INFORMATION
  Report Type: 
  Country: None (occurrence: None)
  Receive Date: 20070305
  Receipt Date: 20070223
  Transmission Date: 20070707
  Serious: Yes (Hospitalization)
  Sender: FDA-Public Use
  Company Number: AU-ROCHE-477678

PATIENT
  Age: 58 Year
  Sex: Female
  Weight: 100 kg

DRUGS (9)
  1. CAPECITABINE [Suspect]
     Dosage: GIVEN ON DAYS 1-14, EVERY 3 WEEKS.
     Route: 048
     Dates: start: 20061113
  2. BEVACIZUMAB [Suspect]
     Dosage: GIVEN ON DAY ONE EVERY THREE WEEKS.
     Route: 042
     Dates: start: 20061113, end: 20070129
  3. MITOMYCIN-C BULK POWDER [Suspect]
     Dosage: GIVEN ON DAY ONE EVERY SIX WEEKS.
     Route: 042
     Dates: start: 20061113
  4. LIPITOR [Concomitant]
     Route: 048
     Dates: start: 20060615
  5. PREMARIN [Concomitant]
     Indication: HORMONE REPLACEMENT THERAPY
     Route: 048
     Dates: start: 20020615
  6. DIAFORMIN [Concomitant]
     Route: 048
     Dates: start: 20050315
  7. WARFARIN SODIUM [Concomitant]
     Route: 048
     Dates: start: 20061108, end: 20070109
  8. TRITACE [Concomitant]
     Indication: HYPERTENSION
     Route: 048
     Dates: start: 20050315
  9. METOCLOPRAMIDE [Concomitant]
     Indication: NAUSEA
     Route: 048
     Dates: start: 20070102

REACTIONS (1)
  - OESOPHAGEAL SPASM [None]
